FAERS Safety Report 7903123-5 (Version None)
Quarter: 2011Q4

REPORT INFORMATION
  Report Type: 
  Country: None (occurrence: None)
  Receive Date: 20111108
  Receipt Date: 20111108
  Transmission Date: 20120403
  Serious: Yes (Hospitalization)
  Sender: FDA-Public Use
  Company Number: None

PATIENT
  Sex: Female
  Weight: 55 kg

DRUGS (3)
  1. FLUOROURACIL [Suspect]
     Dosage: 6040 MG
  2. CISPLATIN [Suspect]
     Dosage: 113 MG
  3. ERBITUX [Suspect]
     Dosage: 1360 MG

REACTIONS (9)
  - ASTHENIA [None]
  - HYPOPHAGIA [None]
  - RENAL FAILURE ACUTE [None]
  - ANAL CANCER [None]
  - BLOOD POTASSIUM DECREASED [None]
  - WEIGHT DECREASED [None]
  - DEHYDRATION [None]
  - BLOOD SODIUM DECREASED [None]
  - NAUSEA [None]
